FAERS Safety Report 13927742 (Version 2)
Quarter: 2018Q4

REPORT INFORMATION
  Report Type: Spontaneous
  Country: JP (occurrence: JP)
  Receive Date: 20170901
  Receipt Date: 20181017
  Transmission Date: 20190204
  Serious: Yes (Life-Threatening, Other)
  Sender: FDA-Public Use
  Company Number: JP-RECORDATI RARE DISEASES-JP-R13005-17-00191

PATIENT
  Sex: Male
  Weight: .81 kg

DRUGS (13)
  1. RESPIA [Suspect]
     Active Substance: CAFFEINE
     Route: 048
     Dates: start: 20160528, end: 20160612
  2. BIO-THREE [Concomitant]
     Active Substance: HERBALS
     Indication: PROPHYLAXIS
     Route: 048
     Dates: end: 20160712
  3. ESPO SUBCUTANEOUS INJECTION [Concomitant]
     Indication: PROPHYLAXIS
     Route: 048
     Dates: start: 20160519
  4. CORTRIL [Concomitant]
     Active Substance: HYDROCORTISONE
     Indication: PROPHYLAXIS
     Route: 048
     Dates: start: 20160523, end: 20160620
  5. 10% SODIUM CHLORIDE [Concomitant]
     Active Substance: SODIUM CHLORIDE
     Indication: PROPHYLAXIS
     Route: 048
     Dates: start: 20160525, end: 20160708
  6. RESPIA [Suspect]
     Active Substance: CAFFEINE
     Route: 041
     Dates: start: 20160523, end: 20160524
  7. RESPIA [Suspect]
     Active Substance: CAFFEINE
     Route: 041
     Dates: start: 20160525, end: 20160527
  8. INCREMIN [Concomitant]
     Active Substance: FERRIC PYROPHOSPHATE
     Indication: PROPHYLAXIS
     Route: 048
     Dates: start: 20160525
  9. PHOSRIBBON [Concomitant]
     Indication: PROPHYLAXIS
     Route: 048
     Dates: start: 20160525
  10. PULMICORT RESPULES [Concomitant]
     Active Substance: BUDESONIDE
     Indication: PROPHYLAXIS
     Route: 055
     Dates: start: 20160522, end: 20160606
  11. RESPIA [Suspect]
     Active Substance: CAFFEINE
     Indication: INFANTILE APNOEA
     Route: 041
     Dates: start: 20160522, end: 20160522
  12. INDACIN [Suspect]
     Active Substance: INDOMETHACIN
     Indication: PATENT DUCTUS ARTERIOSUS
     Route: 042
     Dates: start: 20170530, end: 20170531
  13. THYRADIN S [Concomitant]
     Active Substance: LEVOTHYROXINE SODIUM
     Indication: HYPOTHYROIDISM
     Route: 048
     Dates: start: 20160523, end: 20160719

REACTIONS (3)
  - Circulatory collapse [Recovered/Resolved]
  - Oliguria [Recovered/Resolved]
  - Hypokalaemia [Recovered/Resolved]

NARRATIVE: CASE EVENT DATE: 20160601
